FAERS Safety Report 7070008-9 (Version None)
Quarter: 2010Q4

REPORT INFORMATION
  Report Type: 
  Country: None (occurrence: None)
  Receive Date: 20101028
  Receipt Date: 20101005
  Transmission Date: 20110411
  Serious: No
  Sender: FDA-Public Use
  Company Number: US-WYE-H16812510

PATIENT
  Sex: Female
  Weight: 59.02 kg

DRUGS (9)
  1. PROTONIX [Suspect]
     Indication: ULCER
     Dosage: UNKNOWN
  2. PROZAC [Concomitant]
  3. HYDRALAZINE [Concomitant]
  4. PRILOSEC [Concomitant]
  5. KLONOPIN [Concomitant]
  6. PREVACID [Concomitant]
  7. SKELAXIN [Concomitant]
  8. TOPAMAX [Concomitant]
  9. IBUPROFEN [Concomitant]

REACTIONS (1)
  - DRUG SCREEN FALSE POSITIVE [None]
